FAERS Safety Report 17252530 (Version 1)
Quarter: 2019Q4

REPORT INFORMATION
  Report Type: Spontaneous
  Country: US (occurrence: US)
  Receive Date: 20191216
  Receipt Date: 20191216
  Transmission Date: 20200122
  Serious: Yes (Hospitalization)
  Sender: FDA-Public Use
  Company Number: None

PATIENT
  Age: 75 Year
  Sex: Male

DRUGS (2)
  1. TASIGNA [Suspect]
     Active Substance: NILOTINIB
     Indication: SOFT TISSUE SARCOMA
     Route: 048
     Dates: start: 20190912
  2. TASIGNA [Suspect]
     Active Substance: NILOTINIB
     Indication: MALIGNANT CONNECTIVE TISSUE NEOPLASM
     Route: 048
     Dates: start: 20190912

REACTIONS (2)
  - Nausea [None]
  - Pneumonitis [None]

NARRATIVE: CASE EVENT DATE: 20191213
